FAERS Safety Report 7994761-2 (Version None)
Quarter: 2011Q4

REPORT INFORMATION
  Report Type: 
  Country: None (occurrence: None)
  Receive Date: 20111220
  Receipt Date: 20111213
  Transmission Date: 20120403
  Serious: Yes (Other)
  Sender: FDA-Public Use
  Company Number: US-PFIZER INC-2011261878

PATIENT
  Sex: Male

DRUGS (2)
  1. BENEFIX [Suspect]
     Indication: FACTOR IX DEFICIENCY
     Dosage: 2000 IU, AS NEEDED
     Dates: start: 20090615
  2. BENEFIX [Suspect]
     Indication: HAEMORRHAGE
     Dosage: 2277 IU, UNK
     Dates: start: 20091210, end: 20091210

REACTIONS (2)
  - ANAPHYLACTIC REACTION [None]
  - FACTOR IX INHIBITION [None]
